FAERS Safety Report 8161416-3 (Version None)
Quarter: 2012Q1

REPORT INFORMATION
  Report Type: 
  Country: None (occurrence: None)
  Receive Date: 20120224
  Receipt Date: 20120215
  Transmission Date: 20120608
  Serious: Yes (Hospitalization, Other)
  Sender: FDA-Public Use
  Company Number: US-US-EMD SERONO, INC.-7113907

PATIENT
  Sex: Female

DRUGS (4)
  1. CLONAZEPAM [Concomitant]
  2. REBIF [Suspect]
     Indication: MULTIPLE SCLEROSIS
     Route: 058
     Dates: start: 20111214
  3. INSULIN [Concomitant]
     Indication: DIABETES MELLITUS
  4. UNSPECIFIED HEART MEDICATION [Concomitant]

REACTIONS (5)
  - EJECTION FRACTION DECREASED [None]
  - URINARY TRACT INFECTION [None]
  - BLOOD GLUCOSE INCREASED [None]
  - INJECTION SITE PAIN [None]
  - INJECTION SITE REACTION [None]
